FAERS Safety Report 9252058 (Version 2)
Quarter: 2014Q1

REPORT INFORMATION
  Report Type: Spontaneous
  Country: US (occurrence: None)
  Receive Date: 20130305
  Receipt Date: 20140306
  Transmission Date: 20141002
  Serious: Yes (Other)
  Sender: FDA-Public Use
  Company Number: 163-21880-12091192

PATIENT
  Age: 57 Year
  Sex: Male
  Weight: 113.4 kg

DRUGS (16)
  1. REVLIMID (LENALIDOMIDE) (25 MILLIGRAM, CAPSULES) [Suspect]
     Indication: PLASMA CELL MYELOMA
     Dosage: 25 MG, 21 IN 21 D, PO
     Dates: start: 20110310
  2. CENTRUM SILVER (CENTRUM SILVER) [Concomitant]
  3. COREG (CARVEDILOL) [Concomitant]
  4. POTASSIUM CL (POTASSIUM CHLORIDE) [Concomitant]
  5. HYDROCHLOROTHIAZIDE (HYDROCHLOROTHIAZIDE) [Concomitant]
  6. LORAZEPAM (LORAZEPAM) [Concomitant]
  7. AMLODIPINE BENAZEPRIL (AMLODIPINE  BESYLATE W/BENAZEPRIL HYDROCHLOR) [Concomitant]
  8. ACYCLOVIR (ACICLOVIR) [Concomitant]
  9. BABY ASPIRIN (ACETYLSALICYLIC ACID) [Concomitant]
  10. LISINOPRIL  (LISINOPRIL) [Concomitant]
  11. CLONIDINE HCL (CLONIDINE HYDROCHLORIDE) [Concomitant]
  12. ALLOPURINOL (ALLOPURINOL) [Concomitant]
  13. ZYRTEC (CETIRIZINE HYDROCHLORIDE) [Concomitant]
  14. BYSTOLIC (NEBIVOLOL HYDROCHLORIDE) [Concomitant]
  15. LANSOPRAZOLE (LANSOPRAZOLE) [Concomitant]
  16. FOLBIC (HEPAGRISEVIT FORTE-N TABLET) [Concomitant]

REACTIONS (1)
  - Thrombosis [None]
